FAERS Safety Report 11945195 (Version 1)
Quarter: 2016Q1

REPORT INFORMATION
  Report Type: Spontaneous
  Country: RS (occurrence: RS)
  Receive Date: 20160125
  Receipt Date: 20160125
  Transmission Date: 20160526
  Serious: Yes (Death, Hospitalization)
  Sender: FDA-Public Use
  Company Number: PHHY2016RS005142

PATIENT
  Age: 41 Year
  Sex: Male

DRUGS (3)
  1. NIFEDIPINE. [Interacting]
     Active Substance: NIFEDIPINE
     Indication: HYPERTENSION
     Route: 065
  2. METOPROLOL. [Suspect]
     Active Substance: METOPROLOL
     Indication: HYPERTENSION
     Route: 065
  3. DIAZEPAM. [Interacting]
     Active Substance: DIAZEPAM
     Indication: HYPERTENSION
     Route: 065

REACTIONS (8)
  - Cardiac arrest [Fatal]
  - Atrioventricular block second degree [Unknown]
  - Atrioventricular block complete [Unknown]
  - Overdose [Fatal]
  - Pulse abnormal [Fatal]
  - Coma [Unknown]
  - Blood pressure systolic decreased [Unknown]
  - Irregular breathing [Unknown]
